FAERS Safety Report 5222619-0 (Version None)
Quarter: 2007Q1

REPORT INFORMATION
  Report Type: 
  Country: None (occurrence: None)
  Receive Date: 20070124
  Receipt Date: 20070117
  Transmission Date: 20070707
  Serious: Yes (Hospitalization, Other)
  Sender: FDA-Public Use
  Company Number: 2007SP000917

PATIENT
  Age: 55 Year
  Sex: Female
  Weight: 59 kg

DRUGS (3)
  1. TEMOZOLOMIDE (S-P) (75 MG/M2) [Suspect]
     Indication: GLIOBLASTOMA MULTIFORME
     Dosage: 75 MG/M2; QD; PO
     Route: 048
     Dates: start: 20061122
  2. RADIATION [Concomitant]
  3. DECADRON [Concomitant]

REACTIONS (1)
  - PNEUMONIA [None]
